FAERS Safety Report 4863259-2 (Version None)
Quarter: 2005Q4

REPORT INFORMATION
  Report Type: 
  Country: None (occurrence: None)
  Receive Date: 20051219
  Receipt Date: 20051207
  Transmission Date: 20060501
  Serious: Yes (Hospitalization)
  Sender: FDA-Public Use
  Company Number: 2005165123

PATIENT
  Age: 49 Day
  Sex: Female
  Weight: 5.4432 kg

DRUGS (1)
  1. INFANTS' PEDIACARE DECONGESTANT (PSEUDOEPHEDRINE) [Suspect]
     Dosage: NASAL
     Route: 045
     Dates: start: 20051207, end: 20051207

REACTIONS (3)
  - ACCIDENTAL DRUG INTAKE BY CHILD [None]
  - CRYING [None]
  - DYSPNOEA [None]
